FAERS Safety Report 12524371 (Version 1)
Quarter: 2016Q3

REPORT INFORMATION
  Report Type: Other
  Country: BE (occurrence: BE)
  Receive Date: 20160704
  Receipt Date: 20160704
  Transmission Date: 20161109
  Serious: Yes (Hospitalization, Other)
  Sender: FDA-Public Use
  Company Number: BE-ORCHID HEALTHCARE-1054561

PATIENT
  Age: 88 Year
  Sex: Female

DRUGS (1)
  1. DIVALPROEX SODIUM. [Suspect]
     Active Substance: DIVALPROEX SODIUM
     Indication: EPILEPSY
     Route: 065

REACTIONS (10)
  - Poisoning [Unknown]
  - Pleural effusion [Recovered/Resolved]
  - Breath sounds abnormal [Unknown]
  - Encephalopathy [Unknown]
  - Disturbance in attention [Unknown]
  - Fall [Unknown]
  - Rib fracture [Unknown]
  - Eosinophilia [Recovered/Resolved]
  - Pleurisy [Recovered/Resolved]
  - Dyspnoea exertional [Unknown]
